FAERS Safety Report 11083363 (Version 1)
Quarter: 2015Q2

REPORT INFORMATION
  Report Type: Spontaneous
  Country: US (occurrence: US)
  Receive Date: 20150501
  Receipt Date: 20150501
  Transmission Date: 20150821
  Serious: No
  Sender: FDA-Public Use
  Company Number: US-ABBVIE-14P-163-1275735-00

PATIENT
  Age: 51 Year
  Sex: Male
  Weight: 143.01 kg

DRUGS (3)
  1. ANDROGEL [Suspect]
     Active Substance: TESTOSTERONE
     Indication: BLOOD TESTOSTERONE DECREASED
     Route: 061
     Dates: start: 201404, end: 201405
  2. ANDROGEL [Suspect]
     Active Substance: TESTOSTERONE
     Dates: start: 201405, end: 201406
  3. ANDROGEL [Suspect]
     Active Substance: TESTOSTERONE
     Route: 061
     Dates: start: 201406

REACTIONS (1)
  - Blood testosterone abnormal [Unknown]
